FAERS Safety Report 21403435 (Version 1)
Quarter: 2022Q4

REPORT INFORMATION
  Report Type: Spontaneous
  Country: DE (occurrence: DE)
  Receive Date: 20221003
  Receipt Date: 20221003
  Transmission Date: 20230113
  Serious: Yes (Death, Congenital Anomaly)
  Sender: FDA-Public Use
  Company Number: DE-INSUD PHARMA-2209DE03896

PATIENT

DRUGS (2)
  1. PROGESTERONE [Suspect]
     Active Substance: PROGESTERONE
     Indication: Assisted fertilisation
     Dosage: 300 [MG/D ] 3 SEPARATED DOSES
     Route: 064
  2. FOLS?URE [Concomitant]
     Indication: Prophylaxis of neural tube defect
     Route: 064

REACTIONS (2)
  - Congenital teratoma [Fatal]
  - Foetal exposure during pregnancy [Unknown]
